FAERS Safety Report 5540818-5 (Version None)
Quarter: 2007Q4

REPORT INFORMATION
  Report Type: 
  Country: None (occurrence: None)
  Receive Date: 20071129
  Receipt Date: 20070509
  Transmission Date: 20080405
  Serious: Yes (Hospitalization)
  Sender: FDA-Public Use
  Company Number: USA021022483

PATIENT
  Age: 30 Year
  Sex: Male
  Weight: 83.6 kg

DRUGS (3)
  1. ZYPREXA [Suspect]
     Indication: SCHIZOPHRENIA, PARANOID TYPE
     Dosage: 10 MG, DAILY (1/D), ORAL; 15 MG, DAILY (1/D),; 5 MG, DAILY (1/D),
     Route: 048
     Dates: start: 20050101, end: 20070401
  2. ZYPREXA [Suspect]
     Indication: SCHIZOPHRENIA, PARANOID TYPE
     Dosage: 10 MG, DAILY (1/D), ORAL; 15 MG, DAILY (1/D),; 5 MG, DAILY (1/D),
     Route: 048
     Dates: start: 20070401, end: 20070401
  3. ZYPREXA [Suspect]
     Indication: SCHIZOPHRENIA, PARANOID TYPE
     Dosage: 10 MG, DAILY (1/D), ORAL; 15 MG, DAILY (1/D),; 5 MG, DAILY (1/D),
     Route: 048
     Dates: start: 20000101

REACTIONS (5)
  - ABDOMINAL DISTENSION [None]
  - DEPRESSION [None]
  - HEADACHE [None]
  - SCHIZOPHRENIA [None]
  - WEIGHT INCREASED [None]
